FAERS Safety Report 7553875-1 (Version None)
Quarter: 2011Q2

REPORT INFORMATION
  Report Type: 
  Country: None (occurrence: None)
  Receive Date: 20110617
  Receipt Date: 20110617
  Transmission Date: 20111010
  Serious: Yes (Other)
  Sender: FDA-Public Use
  Company Number: CO-JNJFOC-20110605508

PATIENT
  Age: 40 Year
  Sex: Female

DRUGS (1)
  1. TOPIRAMATE [Suspect]
     Indication: EPILEPSY
     Route: 048
     Dates: start: 20101013

REACTIONS (4)
  - DIZZINESS [None]
  - DYSARTHRIA [None]
  - VOMITING [None]
  - PARALYSIS [None]
